FAERS Safety Report 21833537 (Version 1)
Quarter: 2023Q1

REPORT INFORMATION
  Report Type: Spontaneous
  Country: US (occurrence: US)
  Receive Date: 20230107
  Receipt Date: 20230107
  Transmission Date: 20230418
  Serious: Yes (Other)
  Sender: FDA-Public Use
  Company Number: US-AMGEN-USASP2022227264

PATIENT
  Age: 36 Year
  Sex: Female

DRUGS (7)
  1. BEVACIZUMAB [Suspect]
     Active Substance: BEVACIZUMAB
     Indication: Ovarian granulosa cell tumour
     Dosage: UNK
     Route: 065
  2. CARBOPLATIN [Concomitant]
     Active Substance: CARBOPLATIN
     Indication: Ovarian granulosa cell tumour
     Dosage: UNK
     Route: 065
  3. PEMBROLIZUMAB [Concomitant]
     Active Substance: PEMBROLIZUMAB
     Indication: Ovarian granulosa cell tumour
     Dosage: UNK
     Route: 065
  4. LETROZOLE [Concomitant]
     Active Substance: LETROZOLE
     Indication: Ovarian granulosa cell tumour
     Dosage: UNK
     Route: 065
  5. BICALUTAMIDE [Concomitant]
     Active Substance: BICALUTAMIDE
     Indication: Ovarian granulosa cell tumour
     Route: 065
  6. LEUPROLIDE ACETATE [Concomitant]
     Active Substance: LEUPROLIDE ACETATE
     Indication: Ovarian granulosa cell tumour
     Route: 065
  7. EXEMESTANE [Concomitant]
     Active Substance: EXEMESTANE
     Indication: Ovarian granulosa cell tumour
     Dosage: UNK
     Route: 065

REACTIONS (1)
  - Ovarian granulosa cell tumour [Unknown]
